FAERS Safety Report 5449151-3 (Version None)
Quarter: 2007Q3

REPORT INFORMATION
  Report Type: 
  Country: None (occurrence: None)
  Receive Date: 20070911
  Receipt Date: 20070827
  Transmission Date: 20080115
  Serious: Yes (Other)
  Sender: FDA-Public Use
  Company Number: DE-GENENTECH-247364

PATIENT
  Weight: 94 kg

DRUGS (4)
  1. AVASTIN [Suspect]
     Indication: COLON CANCER
     Dosage: 470 MG, UNK
     Route: 042
     Dates: start: 20070529
  2. CAMPTOSAR [Suspect]
     Indication: COLON CANCER
     Dosage: 160 MG, UNK
     Route: 042
     Dates: start: 20070529
  3. FLUOROURACIL [Concomitant]
     Indication: DRUG USE FOR UNKNOWN INDICATION
     Dates: start: 20070529
  4. LEUCOVORIN CALCIUM [Concomitant]
     Indication: DRUG USE FOR UNKNOWN INDICATION
     Dates: start: 20070529

REACTIONS (2)
  - CEREBRAL ISCHAEMIA [None]
  - DYSAESTHESIA [None]
